FAERS Safety Report 13338509 (Version 1)
Quarter: 2017Q1

REPORT INFORMATION
  Report Type: Report from Study
  Country: CA (occurrence: CA)
  Receive Date: 20170315
  Receipt Date: 20170315
  Transmission Date: 20170428
  Serious: Yes (Other)
  Sender: FDA-Public Use
  Company Number: CA-JNJFOC-20170306060

PATIENT
  Age: 52 Year
  Sex: Male
  Weight: 91 kg

DRUGS (6)
  1. LORAZEPAM. [Concomitant]
     Active Substance: LORAZEPAM
     Route: 048
  2. PREDNISONE. [Concomitant]
     Active Substance: PREDNISONE
     Indication: SYMPATHETIC OPHTHALMIA
     Route: 048
  3. REMICADE [Suspect]
     Active Substance: INFLIXIMAB
     Indication: SYMPATHETIC OPHTHALMIA
     Dosage: 10 MG/KG
     Route: 042
     Dates: start: 20110707
  4. REMICADE [Suspect]
     Active Substance: INFLIXIMAB
     Indication: COLITIS ULCERATIVE
     Dosage: 10 MG/KG
     Route: 042
     Dates: start: 20110707
  5. PREDNISONE. [Concomitant]
     Active Substance: PREDNISONE
     Indication: SYMPATHETIC OPHTHALMIA
     Route: 048
  6. PREDNISONE. [Concomitant]
     Active Substance: PREDNISONE
     Indication: SYMPATHETIC OPHTHALMIA
     Route: 048

REACTIONS (6)
  - Dermatitis contact [Not Recovered/Not Resolved]
  - Off label use [Unknown]
  - Eye pain [Unknown]
  - Wound infection [Unknown]
  - Laceration [Unknown]
  - Product use issue [Unknown]

NARRATIVE: CASE EVENT DATE: 20110707
